FAERS Safety Report 5315331-0 (Version None)
Quarter: 2007Q2

REPORT INFORMATION
  Report Type: 
  Country: None (occurrence: None)
  Receive Date: 20070502
  Receipt Date: 20070420
  Transmission Date: 20071010
  Serious: Yes (Other)
  Sender: FDA-Public Use
  Company Number: US-PFIZER INC-2007033418

PATIENT
  Sex: Female
  Weight: 86.363 kg

DRUGS (8)
  1. CHANTIX [Suspect]
     Indication: SMOKING CESSATION THERAPY
  2. NEXIUM [Concomitant]
  3. LOVENOX [Concomitant]
  4. TRICOR [Concomitant]
  5. LISINOPRIL [Concomitant]
  6. PSYLLIUM [Concomitant]
  7. ASCORBIC ACID [Concomitant]
  8. VITAMIN CAP [Concomitant]

REACTIONS (6)
  - ABNORMAL DREAMS [None]
  - DYSPNOEA [None]
  - INCREASED APPETITE [None]
  - PULMONARY CALCIFICATION [None]
  - PULMONARY FIBROSIS [None]
  - WEIGHT INCREASED [None]
